FAERS Safety Report 6632664-6 (Version None)
Quarter: 2010Q1

REPORT INFORMATION
  Report Type: 
  Country: None (occurrence: None)
  Receive Date: 20100312
  Receipt Date: 20100302
  Transmission Date: 20100710
  Serious: Yes (Hospitalization)
  Sender: FDA-Public Use
  Company Number: JP-BAYER-200914930BYL

PATIENT
  Age: 66 Year
  Sex: Male

DRUGS (9)
  1. ADALAT CC [Suspect]
     Indication: HYPERTENSION
     Route: 048
  2. ADALAT CC [Interacting]
     Route: 048
  3. EFAVIRENZ [Interacting]
     Indication: HIV INFECTION
     Route: 048
  4. KALETRA [Interacting]
     Indication: HIV INFECTION
     Route: 048
  5. OLMESARTAN MEDOXOMIL [Concomitant]
     Indication: HYPERTENSION
     Route: 048
  6. OLMESARTAN MEDOXOMIL [Concomitant]
     Route: 048
  7. NICORANDIL [Concomitant]
     Indication: ANGINA PECTORIS
     Route: 065
  8. DIDANOSINE [Concomitant]
     Indication: HIV INFECTION
     Route: 048
  9. LAMIVUDINE [Concomitant]
     Indication: HIV INFECTION
     Route: 048

REACTIONS (2)
  - HYPERTENSION [None]
  - HYPOTENSION [None]
